FAERS Safety Report 9885034 (Version 8)
Quarter: 2015Q1

REPORT INFORMATION
  Report Type: Spontaneous
  Country: US (occurrence: US)
  Receive Date: 20140210
  Receipt Date: 20150203
  Transmission Date: 20150721
  Serious: Yes (Hospitalization, Other)
  Sender: FDA-Public Use
  Company Number: US-BAYER-2014-020321

PATIENT
  Age: 26 Year
  Sex: Female
  Weight: 79 kg

DRUGS (1)
  1. MIRENA [Suspect]
     Active Substance: LEVONORGESTREL
     Indication: CONTRACEPTION
     Dosage: 20 MCG/24HR, CONT
     Route: 015
     Dates: start: 20050701, end: 20071105

REACTIONS (11)
  - Pregnancy with contraceptive device [None]
  - Genital haemorrhage [None]
  - Injury [None]
  - Abortion spontaneous [None]
  - Abdominal pain [None]
  - Depression [None]
  - Uterine perforation [None]
  - Device dislocation [None]
  - Device issue [None]
  - Drug ineffective [None]
  - Emotional distress [None]

NARRATIVE: CASE EVENT DATE: 2006
